FAERS Safety Report 11756275 (Version 1)
Quarter: 2015Q4

REPORT INFORMATION
  Report Type: Spontaneous
  Country: US (occurrence: US)
  Receive Date: 20151119
  Receipt Date: 20151119
  Transmission Date: 20160304
  Serious: No
  Sender: FDA-Public Use
  Company Number: US-GREER LABORATORIES, INC.-1044450

PATIENT
  Age: 75 Year
  Sex: Female
  Weight: 60 kg

DRUGS (7)
  1. POLLENS - GRASSES, BAHIA GRASS PASPALUM NOTATUM [Suspect]
     Active Substance: PASPALUM NOTATUM POLLEN
     Route: 058
  2. POLLENS - TREES, PINE MIX [Suspect]
     Active Substance: PINUS CONTORTA POLLEN\PINUS PONDEROSA POLLEN
     Route: 058
  3. ANIMAL ALLERGENS, AP DOG HAIR AND DANDER CANIS SPP [Suspect]
     Active Substance: CANIS LUPUS FAMILIARIS DANDER\CANIS LUPUS FAMILIARIS HAIR
     Route: 058
  4. ALLERGENIC EXTRACT- TIMOTHY PHLEUM PROTENSE [Suspect]
     Active Substance: PHLEUM PRATENSE POLLEN
     Indication: MULTIPLE ALLERGIES
     Route: 058
  5. STANDARDIZED BERMUDA GRASS POLLEN [Suspect]
     Active Substance: CYNODON DACTYLON POLLEN
     Route: 058
  6. POLLENS - WEEDS, CARELESS/PIGWEED MIX [Suspect]
     Active Substance: AMARANTHUS PALMERI POLLEN\AMARANTHUS RETROFLEXUS POLLEN
     Route: 058
  7. MOUNTAIN CEDAR POLLEN [Suspect]
     Active Substance: JUNIPERUS ASHEI POLLEN
     Route: 058

REACTIONS (1)
  - Erythema [Recovered/Resolved]

NARRATIVE: CASE EVENT DATE: 20151015
